FAERS Safety Report 8361298-0 (Version None)
Quarter: 2012Q2

REPORT INFORMATION
  Report Type: 
  Country: None (occurrence: None)
  Receive Date: 20120515
  Receipt Date: 20120502
  Transmission Date: 20120825
  Serious: Yes (Hospitalization)
  Sender: FDA-Public Use
  Company Number: FR-ROCHE-1065256

PATIENT
  Sex: Male

DRUGS (4)
  1. TENORDATE [Concomitant]
     Indication: HYPERTENSION
     Route: 048
  2. PRAVIGARD PAC (COPACKAGED) [Concomitant]
     Indication: DYSLIPIDAEMIA
     Route: 048
  3. VEMURAFENIB [Suspect]
     Indication: PRODUCT USED FOR UNKNOWN INDICATION
     Route: 048
     Dates: start: 20120216, end: 20120412
  4. CIBADREX [Concomitant]
     Indication: HYPERTENSION
     Route: 048

REACTIONS (2)
  - CHOLELITHIASIS OBSTRUCTIVE [None]
  - PANCREATITIS ACUTE [None]
